FAERS Safety Report 9347740 (Version 1)
Quarter: 2013Q2

REPORT INFORMATION
  Report Type: Spontaneous
  Country: US (occurrence: None)
  Receive Date: 20130612
  Receipt Date: 20130612
  Transmission Date: 20140414
  Serious: Yes (Death, Life-Threatening, Hospitalization, Disabling, Other)
  Sender: FDA-Public Use
  Company Number: None

PATIENT
  Age: 79 Year
  Sex: Female
  Weight: 81.19 kg

DRUGS (2)
  1. QUETIAPINE (EXTENDED RELEASE) [Suspect]
     Indication: DEMENTIA
     Dosage: 12.5 MG  X 6 HRS
     Dates: start: 20120201
  2. QUETIAPINE [Suspect]
     Dosage: 50 MG  X2  DAY
     Dates: start: 20120222

REACTIONS (4)
  - Convulsion [None]
  - Gait disturbance [None]
  - Brain injury [None]
  - Intentional drug misuse [None]
